FAERS Safety Report 7246158-0 (Version None)
Quarter: 2011Q1

REPORT INFORMATION
  Report Type: 
  Country: None (occurrence: None)
  Receive Date: 20110126
  Receipt Date: 20110119
  Transmission Date: 20110831
  Serious: Yes (Other)
  Sender: FDA-Public Use
  Company Number: A0908783A

PATIENT
  Sex: Female

DRUGS (1)
  1. PAXIL [Suspect]
     Indication: ANXIETY
     Route: 048

REACTIONS (5)
  - WITHDRAWAL SYNDROME [None]
  - SUICIDAL IDEATION [None]
  - SHOPLIFTING [None]
  - PROMISCUITY [None]
  - PARAESTHESIA [None]
